FAERS Safety Report 4862187-6 (Version None)
Quarter: 2005Q4

REPORT INFORMATION
  Report Type: 
  Country: None (occurrence: None)
  Receive Date: 20051221
  Receipt Date: 20051114
  Transmission Date: 20060501
  Serious: Yes (Hospitalization)
  Sender: FDA-Public Use
  Company Number: 2005AP05980

PATIENT
  Age: 20429 Day
  Sex: Female
  Weight: 70 kg

DRUGS (20)
  1. OMEPRAL [Suspect]
     Route: 048
     Dates: start: 20040101
  2. DESYREL [Suspect]
     Indication: DEPRESSION
     Route: 048
     Dates: start: 20031203
  3. LOCHOL [Suspect]
     Indication: HYPERLIPIDAEMIA
     Route: 048
     Dates: start: 20040107, end: 20050801
  4. TOFRANIL [Suspect]
     Indication: DEPRESSION
     Route: 048
     Dates: start: 20050518
  5. TETRAMIDE [Suspect]
     Indication: DEPRESSION
     Route: 048
  6. DEPAS [Suspect]
     Indication: DEPRESSION
     Route: 048
  7. AKINETON [Suspect]
     Indication: HYPERTENSION
     Route: 048
  8. ACECOL [Suspect]
     Route: 048
  9. PL [Concomitant]
     Indication: NASOPHARYNGITIS
     Route: 048
     Dates: start: 20050713, end: 20050713
  10. THIATON [Concomitant]
     Route: 048
     Dates: start: 20050727, end: 20050727
  11. GOODMIN [Concomitant]
     Route: 048
  12. EURODIN [Concomitant]
     Route: 048
  13. BROVARIN [Concomitant]
     Route: 048
  14. MYSLEE [Concomitant]
     Route: 048
  15. PURSENNID [Concomitant]
     Route: 048
  16. RHYTHMY [Concomitant]
     Route: 048
  17. CONTOMIN [Concomitant]
     Indication: DEPRESSION
     Route: 048
  18. RHUBARB [Concomitant]
     Indication: DEPRESSION
     Route: 048
  19. MAGNESIUM OXIDE [Concomitant]
     Route: 048
  20. DORAL [Concomitant]
     Route: 048

REACTIONS (2)
  - HYPOAESTHESIA [None]
  - RHABDOMYOLYSIS [None]
